FAERS Safety Report 8364924-5 (Version None)
Quarter: 2012Q2

REPORT INFORMATION
  Report Type: 
  Country: None (occurrence: None)
  Receive Date: 20120516
  Receipt Date: 20120509
  Transmission Date: 20120825
  Serious: No
  Sender: FDA-Public Use
  Company Number: US-B.I. PHARMACEUTICALS,INC./RIDGEFIELD-2012-BP-10418BP

PATIENT
  Sex: Male

DRUGS (3)
  1. ZYRTEC [Concomitant]
  2. DECONGESTANTS [Concomitant]
  3. FLOMAX [Suspect]
     Indication: BENIGN PROSTATIC HYPERPLASIA

REACTIONS (1)
  - DYSURIA [None]
